FAERS Safety Report 7897992-5 (Version None)
Quarter: 2011Q4

REPORT INFORMATION
  Report Type: 
  Country: None (occurrence: None)
  Receive Date: 20111107
  Receipt Date: 20111107
  Transmission Date: 20120403
  Serious: No
  Sender: FDA-Public Use
  Company Number: None

PATIENT
  Sex: Female
  Weight: 54.431 kg

DRUGS (1)
  1. HYDROXYCHLOROQUINE SULFATE [Suspect]

REACTIONS (4)
  - INCORRECT DRUG ADMINISTRATION DURATION [None]
  - CORNEAL DYSTROPHY [None]
  - AGE-RELATED MACULAR DEGENERATION [None]
  - CATARACT [None]
